FAERS Safety Report 20124168 (Version 2)
Quarter: 2021Q4

REPORT INFORMATION
  Report Type: Spontaneous
  Country: US (occurrence: US)
  Receive Date: 20211129
  Receipt Date: 20211209
  Transmission Date: 20220304
  Serious: No
  Sender: FDA-Public Use
  Company Number: US-KYOWAKIRIN-2021BKK019912

PATIENT

DRUGS (1)
  1. CRYSVITA [Suspect]
     Active Substance: BUROSUMAB-TWZA
     Indication: Product used for unknown indication
     Dosage: UNK, ONCE EVERY 2 WEEKS
     Route: 065

REACTIONS (5)
  - Malaise [Unknown]
  - Somnolence [Unknown]
  - Decreased appetite [Unknown]
  - Blood alkaline phosphatase increased [Unknown]
  - Blood 1,25-dihydroxycholecalciferol increased [Unknown]

NARRATIVE: CASE EVENT DATE: 20210618
